FAERS Safety Report 15760376 (Version 1)
Quarter: 2018Q4

REPORT INFORMATION
  Report Type: Spontaneous
  Country: US (occurrence: US)
  Receive Date: 20181224
  Receipt Date: 20181224
  Transmission Date: 20190205
  Serious: Yes (Hospitalization)
  Sender: FDA-Public Use
  Company Number: None

PATIENT
  Sex: Male

DRUGS (2)
  1. ADYNOVATE [Suspect]
     Active Substance: ANTIHEMOPHILIC FACTOR, HUMAN RECOMBINANT
     Indication: ACQUIRED HAEMOPHILIA
     Dosage: ?          OTHER FREQUENCY:UD;?
     Dates: start: 20181016
  2. ADYNOVATE [Suspect]
     Active Substance: ANTIHEMOPHILIC FACTOR, HUMAN RECOMBINANT
     Indication: ACQUIRED HAEMOPHILIA
     Dosage: ?          OTHER FREQUENCY:UD;?
     Dates: start: 20181016

REACTIONS (1)
  - Catheter placement [None]
